FAERS Safety Report 11793089 (Version 1)
Quarter: 2015Q4

REPORT INFORMATION
  Report Type: Spontaneous
  Country: US (occurrence: None)
  Receive Date: 20151130
  Receipt Date: 20151130
  Transmission Date: 20160305
  Serious: Yes (Other)
  Sender: FDA-Public Use
  Company Number: 2015US-106826

PATIENT
  Age: 59 Year
  Sex: Female

DRUGS (2)
  1. PREDNISONE (PREDNISONE) UNKNOWN [Suspect]
     Active Substance: PREDNISONE
     Indication: CROHN^S DISEASE
     Route: 048
  2. INFLIXIMAB (INFLIXIMAB) UNKNOWN [Suspect]
     Active Substance: INFLIXIMAB
     Indication: CROHN^S DISEASE

REACTIONS (3)
  - Nocardiosis [None]
  - Pneumocystis jirovecii pneumonia [None]
  - Pulmonary cavitation [None]
